FAERS Safety Report 7389258-7 (Version None)
Quarter: 2011Q2

REPORT INFORMATION
  Report Type: 
  Country: None (occurrence: None)
  Receive Date: 20110401
  Receipt Date: 20110330
  Transmission Date: 20111010
  Serious: Yes (Life-Threatening, Hospitalization, Other)
  Sender: FDA-Public Use
  Company Number: CA-BAYER-2011-013687

PATIENT
  Age: 78 Year
  Sex: Female
  Weight: 72.57 kg

DRUGS (4)
  1. ASCORBIC ACID [Concomitant]
  2. VITAMIN D [Concomitant]
  3. ALEVE [Suspect]
     Indication: MUSCULOSKELETAL PAIN
     Dosage: 220 MG, QD
     Route: 048
     Dates: start: 20100601, end: 20100731
  4. ALENDRONATE SODIUM [Suspect]
     Indication: OSTEITIS DEFORMANS
     Dosage: 70 MG, OW
     Route: 048

REACTIONS (6)
  - ABDOMINAL PAIN [None]
  - DUODENAL ULCER PERFORATION [None]
  - CHEST PAIN [None]
  - DUODENAL ULCER REPAIR [None]
  - ABDOMINAL DISTENSION [None]
  - ATRIAL FIBRILLATION [None]
